FAERS Safety Report 16699350 (Version 1)
Quarter: 2019Q3

REPORT INFORMATION
  Report Type: Spontaneous
  Country: US (occurrence: US)
  Receive Date: 20190813
  Receipt Date: 20190813
  Transmission Date: 20191004
  Serious: No
  Sender: FDA-Public Use
  Company Number: US-BAUSCH-BL-2019-022026

PATIENT
  Sex: Female

DRUGS (2)
  1. LUMIFY [Suspect]
     Active Substance: BRIMONIDINE TARTRATE
     Dosage: BOUGHT A NEW BOTTLE ABOUT A MONTH OR 2 AGO
     Route: 047
     Dates: start: 2019, end: 20190729
  2. LUMIFY [Suspect]
     Active Substance: BRIMONIDINE TARTRATE
     Indication: OCULAR HYPERAEMIA
     Dosage: START DATE: 1.5 TO 2 YEARS AGO; AS NEEDED
     Route: 047

REACTIONS (3)
  - Product quality issue [Unknown]
  - Eyelid margin crusting [Unknown]
  - Ocular hyperaemia [Unknown]

NARRATIVE: CASE EVENT DATE: 2019
